FAERS Safety Report 7002878-4 (Version None)
Quarter: 2010Q3

REPORT INFORMATION
  Report Type: 
  Country: None (occurrence: None)
  Receive Date: 20100920
  Receipt Date: 20100514
  Transmission Date: 20110219
  Serious: No
  Sender: FDA-Public Use
  Company Number: US-ASTRAZENECA-2010SE20422

PATIENT
  Age: 33 Year
  Sex: Female
  Weight: 54.4 kg

DRUGS (8)
  1. SEROQUEL [Suspect]
     Route: 048
     Dates: start: 20080101
  2. SEROQUEL [Suspect]
     Route: 048
  3. SEROQUEL [Suspect]
     Route: 048
  4. SEROQUEL [Suspect]
     Route: 048
  5. SEROQUEL [Suspect]
     Route: 048
  6. LAMICTAL [Concomitant]
  7. CLONAZEPAM [Concomitant]
  8. BIRTH CONTROL [Concomitant]

REACTIONS (3)
  - ADVERSE DRUG REACTION [None]
  - DISTURBANCE IN SEXUAL AROUSAL [None]
  - MICTURITION URGENCY [None]
